FAERS Safety Report 7927129 (Version 5)
Quarter: 2014Q3

REPORT INFORMATION
  Report Type: Spontaneous
  Country: US (occurrence: US)
  Receive Date: 20110502
  Receipt Date: 20140717
  Transmission Date: 20150326
  Serious: Yes (Other)
  Sender: FDA-Public Use
  Company Number: US-ASTRAZENECA-2011SE09491

PATIENT
  Age: 45 Year
  Sex: Female

DRUGS (3)
  1. CRESTOR [Suspect]
     Active Substance: ROSUVASTATIN CALCIUM
     Route: 048
  2. OTHER-UNSPECIFIED [Concomitant]
     Indication: PLATELET AGGREGATION INHIBITION
  3. NEXIUM [Suspect]
     Active Substance: ESOMEPRAZOLE MAGNESIUM
     Indication: GASTROOESOPHAGEAL REFLUX DISEASE
     Route: 048
     Dates: end: 201406

REACTIONS (14)
  - Malaise [Unknown]
  - Drug dose omission [Not Recovered/Not Resolved]
  - Feeling abnormal [Unknown]
  - Regurgitation [Unknown]
  - Infection [Unknown]
  - Pain [Unknown]
  - Scleroderma [Not Recovered/Not Resolved]
  - Aphagia [Unknown]
  - Skin disorder [Unknown]
  - Hypertension [Unknown]
  - Thrombosis [Unknown]
  - Pain in extremity [Unknown]
  - Muscle spasms [Unknown]
  - Gait disturbance [Unknown]

NARRATIVE: CASE EVENT DATE: 2004
